FAERS Safety Report 12790045 (Version 2)
Quarter: 2016Q4

REPORT INFORMATION
  Report Type: Spontaneous
  Country: US (occurrence: US)
  Receive Date: 20160928
  Receipt Date: 20161028
  Transmission Date: 20170207
  Serious: Yes (Other)
  Sender: FDA-Public Use
  Company Number: US-009507513-1609USA012174

PATIENT
  Age: 19 Year
  Sex: Female
  Weight: 62.95 kg

DRUGS (1)
  1. NEXPLANON [Suspect]
     Active Substance: ETONOGESTREL
     Indication: CONTRACEPTION
     Dosage: 1 IMPLANT, UNK
     Route: 059
     Dates: start: 20150515, end: 20160118

REACTIONS (6)
  - General anaesthesia [Recovered/Resolved]
  - Chlamydial infection [Unknown]
  - Device difficult to use [Recovered/Resolved]
  - Pain in extremity [Recovered/Resolved]
  - Migration of implanted drug [Recovered/Resolved]
  - Device deployment issue [Recovered/Resolved]

NARRATIVE: CASE EVENT DATE: 20151209
